FAERS Safety Report 5778479-2 (Version None)
Quarter: 2008Q2

REPORT INFORMATION
  Report Type: 
  Country: None (occurrence: None)
  Receive Date: 20080617
  Receipt Date: 20080617
  Transmission Date: 20081010
  Serious: Yes (Disabling)
  Sender: FDA-Public Use
  Company Number: None

PATIENT
  Age: 43 Year
  Sex: Female
  Weight: 95.2554 kg

DRUGS (1)
  1. MIRENA [Suspect]
     Indication: VAGINAL HAEMORRHAGE
     Dosage: SLOW RELEASE 5YEAR VAG
     Route: 067
     Dates: start: 20050801, end: 20080516

REACTIONS (17)
  - ABDOMINAL PAIN [None]
  - ACNE [None]
  - ANXIETY [None]
  - ARTHRALGIA [None]
  - BACK PAIN [None]
  - BREAST PAIN [None]
  - DEPRESSION [None]
  - EAR PAIN [None]
  - FATIGUE [None]
  - HOT FLUSH [None]
  - INFECTION [None]
  - LOSS OF LIBIDO [None]
  - MEMORY IMPAIRMENT [None]
  - MENOPAUSE [None]
  - MOOD SWINGS [None]
  - SKIN DISORDER [None]
  - WEIGHT INCREASED [None]
